FAERS Safety Report 8530791-X (Version None)
Quarter: 2012Q2

REPORT INFORMATION
  Report Type: 
  Country: None (occurrence: None)
  Receive Date: 20120411
  Receipt Date: 20120305
  Transmission Date: 20120825
  Serious: No
  Sender: FDA-Public Use
  Company Number: PHEH2012US005139

PATIENT
  Age: 58 Year
  Sex: Male

DRUGS (1)
  1. ILARIS [Suspect]
     Indication: CRYOPYRIN ASSOCIATED PERIODIC SYNDROME
     Dosage: 150 MG, SUBCUTANEOUS
     Route: 058
     Dates: start: 20110801

REACTIONS (3)
  - INFLUENZA [None]
  - MALAISE [None]
  - HEADACHE [None]
